FAERS Safety Report 25473255 (Version 1)
Quarter: 2025Q2

REPORT INFORMATION
  Report Type: Spontaneous
  Country: DE (occurrence: None)
  Receive Date: 20250623
  Receipt Date: 20250623
  Transmission Date: 20250717
  Serious: Yes (Life-Threatening, Disabling)
  Sender: FDA-CTU
  Company Number: None

PATIENT
  Age: 38 Year
  Sex: Female
  Weight: 65 kg

DRUGS (1)
  1. ESCITALOPRAM [Suspect]
     Active Substance: ESCITALOPRAM OXALATE
     Indication: Panic attack
     Route: 048
     Dates: start: 20130108, end: 20250101

REACTIONS (10)
  - Panic reaction [None]
  - Nausea [None]
  - Therapy change [None]
  - Depersonalisation/derealisation disorder [None]
  - Pain [None]
  - Vomiting [None]
  - Insomnia [None]
  - Hypophagia [None]
  - Job dissatisfaction [None]
  - Withdrawal syndrome [None]

NARRATIVE: CASE EVENT DATE: 20250101
